FAERS Safety Report 5655793-2 (Version None)
Quarter: 2008Q1

REPORT INFORMATION
  Report Type: 
  Country: None (occurrence: None)
  Receive Date: 20080307
  Receipt Date: 20080226
  Transmission Date: 20080703
  Serious: Yes (Hospitalization)
  Sender: FDA-Public Use
  Company Number: CA-PFIZER INC-2008017912

PATIENT
  Sex: Male
  Weight: 51 kg

DRUGS (1)
  1. SU-011,248 [Suspect]
     Indication: GASTROINTESTINAL STROMAL TUMOUR
     Route: 048
     Dates: start: 20060118, end: 20070101

REACTIONS (3)
  - ABDOMINAL PAIN [None]
  - COMA [None]
  - LOWER RESPIRATORY TRACT INFECTION [None]
